FAERS Safety Report 6784721-1 (Version None)
Quarter: 2010Q2

REPORT INFORMATION
  Report Type: 
  Country: None (occurrence: None)
  Receive Date: 20100622
  Receipt Date: 20100614
  Transmission Date: 20101027
  Serious: Yes (Hospitalization)
  Sender: FDA-Public Use
  Company Number: JP-AMGEN-US395276

PATIENT
  Sex: Male
  Weight: 54 kg

DRUGS (8)
  1. ENBREL [Suspect]
     Indication: RHEUMATOID ARTHRITIS
     Dosage: 25 MG 2X/WEEK, INJECTION
     Route: 058
     Dates: start: 20060609
  2. ENBREL [Suspect]
     Dosage: 50 MG/WEEK, SOLUTION FOR INJECTION, ENDING 25-JAN-2010
     Route: 058
     Dates: end: 20100125
  3. RIMATIL [Concomitant]
     Indication: RHEUMATOID ARTHRITIS
     Route: 048
     Dates: start: 20030723
  4. ACINON [Concomitant]
     Indication: PROPHYLAXIS AGAINST GASTROINTESTINAL ULCER
     Route: 048
  5. TROXSIN [Concomitant]
     Indication: PROPHYLAXIS AGAINST GASTROINTESTINAL ULCER
     Route: 048
  6. CYTOTEC [Concomitant]
     Indication: PROPHYLAXIS AGAINST GASTROINTESTINAL ULCER
     Route: 048
  7. BREDININ [Concomitant]
     Indication: RHEUMATOID ARTHRITIS
     Route: 048
  8. BONALON [Concomitant]
     Indication: OSTEOPOROSIS
     Route: 048
     Dates: start: 20060202

REACTIONS (4)
  - ADVERSE EVENT [None]
  - PLEURAL ADHESION [None]
  - PLEURAL EFFUSION [None]
  - PNEUMONIA HAEMOPHILUS [None]
